FAERS Safety Report 9848634 (Version 5)
Quarter: 2014Q2

REPORT INFORMATION
  Report Type: Report from Study
  Country: AU (occurrence: AU)
  Receive Date: 20140128
  Receipt Date: 20140506
  Transmission Date: 20141212
  Serious: Yes (Hospitalization, Other)
  Sender: FDA-Public Use
  Company Number: PHHY2014AU008671

PATIENT
  Sex: Female

DRUGS (1)
  1. CLOZARIL [Suspect]
     Dosage: 450 MG
     Dates: start: 20060615, end: 20140409

REACTIONS (6)
  - General physical health deterioration [Unknown]
  - Stress [Unknown]
  - Suicidal behaviour [Unknown]
  - Depression [Unknown]
  - Malaise [Unknown]
  - Drug ineffective [Unknown]
